FAERS Safety Report 9474051 (Version 1)
Quarter: 2013Q3

REPORT INFORMATION
  Report Type: Report from Study
  Country: BR (occurrence: AR)
  Receive Date: 20130823
  Receipt Date: 20130823
  Transmission Date: 20140515
  Serious: Yes (Other)
  Sender: FDA-Public Use
  Company Number: PHHY2013AR091545

PATIENT
  Age: 85 Year
  Sex: Female

DRUGS (2)
  1. EXELON PATCH [Suspect]
     Indication: DEMENTIA ALZHEIMER^S TYPE
     Dosage: 4.6 MG (PATCH 5 CM2), DAILY
     Route: 062
  2. EXELON PATCH [Suspect]
     Dosage: 9.5 MG (PATCH 10 CM2), DAILY
     Route: 062

REACTIONS (1)
  - Anaemia [Recovering/Resolving]
